FAERS Safety Report 23955659 (Version 2)
Quarter: 2024Q2

REPORT INFORMATION
  Report Type: Spontaneous
  Country: JP (occurrence: JP)
  Receive Date: 20240610
  Receipt Date: 20240614
  Transmission Date: 20240717
  Serious: Yes (Other)
  Sender: FDA-Public Use
  Company Number: JP-AMGEN-JPNSP2024111048

PATIENT
  Sex: Male

DRUGS (1)
  1. BLINCYTO [Suspect]
     Active Substance: BLINATUMOMAB
     Indication: Acute lymphocytic leukaemia
     Dosage: 28 MICROGRAM, CONTINUING, 24 HOUR, DRIP INFUSION
     Route: 042
     Dates: start: 20240509, end: 20240603

REACTIONS (1)
  - Central nervous system leukaemia [Not Recovered/Not Resolved]

NARRATIVE: CASE EVENT DATE: 20240603
